FAERS Safety Report 22332249 (Version 1)
Quarter: 2023Q2

REPORT INFORMATION
  Report Type: Spontaneous
  Country: US (occurrence: None)
  Receive Date: 20230516
  Receipt Date: 20230516
  Transmission Date: 20230722
  Serious: Yes (Other)
  Sender: FDA-Public Use
  Company Number: None

PATIENT
  Age: 42 Year
  Sex: Female
  Weight: 57.6 kg

DRUGS (1)
  1. LACOSAMIDE [Suspect]
     Active Substance: LACOSAMIDE
     Indication: Seizure
     Dosage: FREQUENCY : TWICE A DAY;?
     Route: 048
     Dates: start: 20230420, end: 20230510

REACTIONS (3)
  - Suspected product quality issue [None]
  - Seizure [None]
  - Product substitution issue [None]

NARRATIVE: CASE EVENT DATE: 20230508
